FAERS Safety Report 8035792-6 (Version None)
Quarter: 2011Q4

REPORT INFORMATION
  Report Type: 
  Country: None (occurrence: None)
  Receive Date: 20111202
  Receipt Date: 20110919
  Transmission Date: 20120403
  Serious: Yes (Other)
  Sender: FDA-Public Use
  Company Number: PHEH2011US04675

PATIENT
  Sex: Male
  Weight: 136.1 kg

DRUGS (3)
  1. LATUDA [Concomitant]
  2. FANAPT [Suspect]
     Indication: SCHIZOPHRENIA
     Dosage: 2MG, QD, ORAL
     Route: 048
     Dates: start: 20110902, end: 20110913
  3. RISPERDAL [Concomitant]

REACTIONS (2)
  - FAECAL INCONTINENCE [None]
  - URINARY INCONTINENCE [None]
